FAERS Safety Report 24810568 (Version 1)
Quarter: 2025Q1

REPORT INFORMATION
  Report Type: Spontaneous
  Country: AU (occurrence: None)
  Receive Date: 20250104
  Receipt Date: 20250104
  Transmission Date: 20250408
  Serious: Yes (Disabling)
  Sender: FDA-CTU
  Company Number: None

PATIENT
  Age: 16 Year
  Sex: Male
  Weight: 80 kg

DRUGS (3)
  1. FLUOXETINE [Suspect]
     Active Substance: FLUOXETINE HYDROCHLORIDE
     Indication: Depression
     Dosage: FREQUENCY : TWICE A DAY;?
     Route: 048
  2. MOCLOBEMIDE [Concomitant]
     Active Substance: MOCLOBEMIDE
  3. FISH OIL [Concomitant]
     Active Substance: FISH OIL

REACTIONS (7)
  - Male sexual dysfunction [None]
  - Sexual dysfunction [None]
  - Orgasm abnormal [None]
  - Erectile dysfunction [None]
  - Libido decreased [None]
  - Helplessness [None]
  - Psychiatric symptom [None]

NARRATIVE: CASE EVENT DATE: 20161225
